FAERS Safety Report 10652010 (Version 1)
Quarter: 2014Q4

REPORT INFORMATION
  Report Type: Spontaneous
  Country: KR (occurrence: KR)
  Receive Date: 20141215
  Receipt Date: 20141215
  Transmission Date: 20150529
  Serious: Yes (Hospitalization)
  Sender: FDA-Public Use
  Company Number: PHHY2014KR158342

PATIENT
  Age: 45 Year
  Sex: Female

DRUGS (2)
  1. 5-FLUOROURACIL [Suspect]
     Active Substance: FLUOROURACIL
     Indication: ADENOCARCINOMA OF COLON
     Dosage: 400 MG, QD
     Route: 065
  2. LEVAMISOLE [Suspect]
     Active Substance: LEVAMISOLE
     Indication: ADENOCARCINOMA OF COLON
     Dosage: 100 MG, QD
     Route: 048

REACTIONS (7)
  - IIIrd nerve paralysis [Recovering/Resolving]
  - Gaze palsy [Recovering/Resolving]
  - Leukoencephalopathy [Recovering/Resolving]
  - Eyelid ptosis [Recovering/Resolving]
  - Ataxia [Recovering/Resolving]
  - Diplopia [Recovering/Resolving]
  - Central nervous system lesion [Recovering/Resolving]
